FAERS Safety Report 23565765 (Version 3)
Quarter: 2024Q2

REPORT INFORMATION
  Report Type: Report from Study
  Country: US (occurrence: US)
  Receive Date: 20240226
  Receipt Date: 20240523
  Transmission Date: 20240715
  Serious: Yes (Death, Other)
  Sender: FDA-Public Use
  Company Number: US-ABBVIE-5652834

PATIENT
  Age: 78 Year
  Sex: Male

DRUGS (4)
  1. DUOPA [Suspect]
     Active Substance: CARBIDOPA\LEVODOPA
     Indication: Parkinson^s disease
     Route: 050
  2. DUOPA [Suspect]
     Active Substance: CARBIDOPA\LEVODOPA
     Route: 050
     Dates: start: 20231012, end: 20240117
  3. DUOPA [Suspect]
     Active Substance: CARBIDOPA\LEVODOPA
     Route: 050
     Dates: start: 20240117, end: 20240221
  4. DUOPA [Suspect]
     Active Substance: CARBIDOPA\LEVODOPA
     Dosage: DUOPA (100ML X 7) 4.63-20MG MD: 9ML, (LO-20HRS),CD: 1.5ML/HR , ED: 1ML?LAST ADMIN DATE : 2023
     Route: 050
     Dates: start: 202309

REACTIONS (2)
  - Death [Fatal]
  - Palliative care [Unknown]

NARRATIVE: CASE EVENT DATE: 20240221
